FAERS Safety Report 9626518 (Version 2)
Quarter: 2013Q4

REPORT INFORMATION
  Report Type: Spontaneous
  Country: CH (occurrence: CH)
  Receive Date: 20131016
  Receipt Date: 20131025
  Transmission Date: 20140711
  Serious: Yes (Other)
  Sender: FDA-Public Use
  Company Number: CH-GILEAD-2013-0085070

PATIENT
  Sex: Male

DRUGS (1)
  1. EVIPLERA [Suspect]
     Indication: HIV INFECTION
     Dosage: UNK, QD
     Dates: start: 20110805, end: 20120903

REACTIONS (3)
  - Virologic failure [Unknown]
  - Genotype drug resistance test positive [Unknown]
  - Genotype drug resistance test positive [Unknown]
